FAERS Safety Report 21930013 (Version 2)
Quarter: 2023Q1

REPORT INFORMATION
  Report Type: Spontaneous
  Country: FR (occurrence: FR)
  Receive Date: 20230131
  Receipt Date: 20230329
  Transmission Date: 20230417
  Serious: No
  Sender: FDA-Public Use
  Company Number: FR-ORGANON-O2301FRA001163

PATIENT
  Sex: Female

DRUGS (1)
  1. NEXPLANON [Suspect]
     Active Substance: ETONOGESTREL
     Dosage: 1 IMPLANT IN LEFT ARM (RIGHT HANDED)
     Route: 059
     Dates: start: 20221105

REACTIONS (12)
  - Mobility decreased [Unknown]
  - Suppressed lactation [Unknown]
  - Menstruation delayed [Recovered/Resolved]
  - Vaginal haemorrhage [Unknown]
  - Pain in extremity [Recovering/Resolving]
  - Fatigue [Unknown]
  - Anxiety [Unknown]
  - Headache [Unknown]
  - Anaemia [Unknown]
  - Asthenia [Unknown]
  - Maternal exposure during breast feeding [Unknown]
  - Inappropriate schedule of product administration [Unknown]

NARRATIVE: CASE EVENT DATE: 20220101
